FAERS Safety Report 5504845-6 (Version None)
Quarter: 2007Q4

REPORT INFORMATION
  Report Type: 
  Country: None (occurrence: None)
  Receive Date: 20071102
  Receipt Date: 20071025
  Transmission Date: 20080405
  Serious: Yes (Hospitalization)
  Sender: FDA-Public Use
  Company Number: PHEH2007US14101

PATIENT
  Age: 79 Year
  Sex: Female

DRUGS (6)
  1. ADDERALL 10 [Concomitant]
  2. PROVIGIL [Concomitant]
  3. DEPAKOTE [Concomitant]
  4. EFFEXOR [Concomitant]
  5. WELLBUTRIN [Concomitant]
  6. CLOZARIL [Suspect]
     Indication: SCHIZOAFFECTIVE DISORDER
     Dosage: 300 MG, QD
     Route: 048
     Dates: start: 20020101

REACTIONS (5)
  - ASPIRATION PLEURAL CAVITY [None]
  - DYSPNOEA [None]
  - EMPHYSEMA [None]
  - OEDEMA PERIPHERAL [None]
  - PULMONARY OEDEMA [None]
